FAERS Safety Report 8569663-3 (Version None)
Quarter: 2012Q3

REPORT INFORMATION
  Report Type: 
  Country: None (occurrence: None)
  Receive Date: 20120803
  Receipt Date: 20120723
  Transmission Date: 20120928
  Serious: Yes (Other)
  Sender: FDA-Public Use
  Company Number: US-ELI_LILLY_AND_COMPANY-US201207007315

PATIENT
  Sex: Male

DRUGS (3)
  1. GABAPENTIN [Concomitant]
  2. CYMBALTA [Suspect]
     Indication: BACK PAIN
     Dosage: UNK
     Dates: start: 20120101
  3. SEROQUEL [Concomitant]

REACTIONS (4)
  - EXFOLIATIVE RASH [None]
  - PRURITUS [None]
  - DRUG INEFFECTIVE [None]
  - SKIN HAEMORRHAGE [None]
